FAERS Safety Report 22271189 (Version 1)
Quarter: 2023Q2

REPORT INFORMATION
  Report Type: Report from Study
  Country: CA (occurrence: CA)
  Receive Date: 20230501
  Receipt Date: 20230501
  Transmission Date: 20230721
  Serious: Yes (Other)
  Sender: FDA-Public Use
  Company Number: CA-KOREA IPSEN Pharma-2022-32916

PATIENT
  Age: 69 Year
  Sex: Female

DRUGS (5)
  1. LANREOTIDE ACETATE [Suspect]
     Active Substance: LANREOTIDE ACETATE
     Indication: Carcinoid syndrome
     Dosage: 120 MG EVERY 4 WEEKS
     Route: 058
     Dates: start: 20220711
  2. RAMIPRIL [Concomitant]
     Active Substance: RAMIPRIL
     Dosage: 1 TABLET ONCE DAILY
  3. OMEGA 3 [Concomitant]
     Active Substance: CAPSAICIN
     Dosage: 2 TABLETS ONCE DAILY
  4. VITAMIN D [Concomitant]
     Active Substance: VITAMIN D NOS
     Dosage: 2 TABLETS ONCE DAILY
  5. VITAMIN C [Concomitant]
     Active Substance: ASCORBIC ACID
     Dosage: 1 TABLET ONCE DAILY

REACTIONS (3)
  - Hepatic neoplasm [Unknown]
  - Abdominal distension [Not Recovered/Not Resolved]
  - Constipation [Recovering/Resolving]

NARRATIVE: CASE EVENT DATE: 20221101
